FAERS Safety Report 6384806-8 (Version None)
Quarter: 2009Q4

REPORT INFORMATION
  Report Type: 
  Country: None (occurrence: None)
  Receive Date: 20091001
  Receipt Date: 20090918
  Transmission Date: 20100525
  Serious: Yes (Hospitalization, Other)
  Sender: FDA-Public Use
  Company Number: IT-ELI_LILLY_AND_COMPANY-IT200908000482

PATIENT
  Sex: Male

DRUGS (1)
  1. ZYPREXA [Suspect]
     Indication: SUICIDE ATTEMPT
     Dosage: 10 D/F, DAILY (1/D)
     Dates: start: 20090729, end: 20090729

REACTIONS (6)
  - BLINDNESS [None]
  - COMA [None]
  - INTENTIONAL DRUG MISUSE [None]
  - INTENTIONAL OVERDOSE [None]
  - STRABISMUS [None]
  - SUICIDE ATTEMPT [None]
